FAERS Safety Report 7301981-9 (Version None)
Quarter: 2011Q1

REPORT INFORMATION
  Report Type: 
  Country: None (occurrence: None)
  Receive Date: 20110218
  Receipt Date: 20110204
  Transmission Date: 20110831
  Serious: Yes (Hospitalization)
  Sender: FDA-Public Use
  Company Number: DE-PFIZER INC-2011019645

PATIENT
  Age: 62 Year
  Sex: Male

DRUGS (6)
  1. NORVASC [Concomitant]
     Indication: HYPERTENSION
     Dosage: UNK
  2. BELOC [Concomitant]
     Indication: HYPERTENSION
     Dosage: UNK
     Dates: start: 20110110
  3. PIRACETAM [Concomitant]
     Indication: DISTURBANCE IN ATTENTION
     Dosage: UNK
  4. AMIODARONE HCL [Suspect]
     Indication: ATRIAL FIBRILLATION
     Dosage: 200 MG, 1X/DAY
     Route: 048
     Dates: end: 20110110
  5. DOXAZOSIN [Concomitant]
     Indication: HYPERTENSION
     Dosage: UNK
  6. WARFARIN [Concomitant]
     Indication: ATRIAL FIBRILLATION
     Dosage: UNK

REACTIONS (5)
  - CHEST PAIN [None]
  - HEART RATE IRREGULAR [None]
  - HYPERTHYROIDISM [None]
  - HEART RATE INCREASED [None]
  - TACHYARRHYTHMIA [None]
